FAERS Safety Report 23216893 (Version 1)
Quarter: 2023Q4

REPORT INFORMATION
  Report Type: Spontaneous
  Country: PH (occurrence: PH)
  Receive Date: 20231122
  Receipt Date: 20231122
  Transmission Date: 20240110
  Serious: Yes (Death, Other)
  Sender: FDA-Public Use
  Company Number: PH-DSJP-DSJ-2023-148118

PATIENT
  Age: 85 Year
  Sex: Female

DRUGS (1)
  1. EDOXABAN [Suspect]
     Active Substance: EDOXABAN
     Indication: Atrial fibrillation
     Dosage: 30 MG, QD
     Route: 048
     Dates: start: 20231112, end: 20231113

REACTIONS (2)
  - Death [Fatal]
  - Haemorrhage [Fatal]

NARRATIVE: CASE EVENT DATE: 20231113
